FAERS Safety Report 6543273-1 (Version None)
Quarter: 2010Q1

REPORT INFORMATION
  Report Type: 
  Country: None (occurrence: None)
  Receive Date: 20100120
  Receipt Date: 20100113
  Transmission Date: 20100710
  Serious: Yes (Other)
  Sender: FDA-Public Use
  Company Number: US-JNJCH-2010001071

PATIENT
  Age: 39 Year
  Sex: Female
  Weight: 65.8 kg

DRUGS (1)
  1. LISTERINE TOTAL CARE ANTICAVITY MOUTHWASH CINNAMINT [Suspect]
     Indication: DRUG USE FOR UNKNOWN INDICATION
     Dosage: TEXT:UNSPECIFIED ONCE
     Route: 048
     Dates: start: 20100113, end: 20100113

REACTIONS (2)
  - APPLICATION SITE BURN [None]
  - APPLICATION SITE PAIN [None]
